FAERS Safety Report 4809174-1 (Version None)
Quarter: 2005Q4

REPORT INFORMATION
  Report Type: 
  Country: None (occurrence: None)
  Receive Date: 20051025
  Receipt Date: 20050831
  Transmission Date: 20060501
  Serious: Yes (Death)
  Sender: FDA-Public Use
  Company Number: US-BRISTOL-MYERS SQUIBB COMPANY-13097167

PATIENT
  Age: 73 Year
  Sex: Male

DRUGS (14)
  1. MEGACE [Suspect]
     Indication: DECREASED APPETITE
     Route: 048
  2. TYLENOL W/ CODEINE NO. 3 [Concomitant]
     Route: 048
     Dates: start: 20050609
  3. LOPRESSOR [Concomitant]
     Route: 048
     Dates: start: 20050426
  4. NORVASC [Concomitant]
     Route: 048
     Dates: start: 20050426
  5. ZESTRIL [Concomitant]
     Route: 048
     Dates: start: 20050406
  6. NASONEX [Concomitant]
     Route: 045
     Dates: start: 20050322
  7. ELAVIL [Concomitant]
     Route: 048
     Dates: start: 20050201
  8. HUMIBID L.A. [Concomitant]
     Route: 048
     Dates: start: 20040727
  9. HEPARIN [Concomitant]
     Route: 042
     Dates: start: 20031027
  10. DIATX [Concomitant]
     Route: 048
     Dates: start: 20030524
  11. PHOSLO [Concomitant]
     Route: 048
     Dates: start: 20030524
  12. EPO [Concomitant]
     Route: 042
     Dates: start: 20050708, end: 20050708
  13. HEPARIN [Concomitant]
     Route: 042
     Dates: start: 20030522
  14. FERRLECIT [Concomitant]
     Route: 042
     Dates: start: 20050624

REACTIONS (1)
  - CARDIAC ARREST [None]
